FAERS Safety Report 13500253 (Version 4)
Quarter: 2017Q2

REPORT INFORMATION
  Report Type: Spontaneous
  Country: JP (occurrence: JP)
  Receive Date: 20170501
  Receipt Date: 20170629
  Transmission Date: 20170830
  Serious: Yes (Other)
  Sender: FDA-Public Use
  Company Number: JP-ALLERGAN-1706793US

PATIENT
  Age: 57 Year
  Sex: Female

DRUGS (1)
  1. BOTOX [Suspect]
     Active Substance: ONABOTULINUMTOXINA
     Indication: FACIAL SPASM
     Dosage: 32.5 UNITS, SINGLE
     Route: 030
     Dates: start: 20170206, end: 20170206

REACTIONS (5)
  - Rash papular [Recovered/Resolved]
  - Toxic skin eruption [Recovered/Resolved]
  - Generalised erythema [Recovered/Resolved]
  - Rash generalised [Recovered/Resolved]
  - Eyelid ptosis [Not Recovered/Not Resolved]

NARRATIVE: CASE EVENT DATE: 201702
